FAERS Safety Report 10788714 (Version 1)
Quarter: 2015Q1

REPORT INFORMATION
  Report Type: Spontaneous
  Country: FR (occurrence: FR)
  Receive Date: 20150212
  Receipt Date: 20150212
  Transmission Date: 20150721
  Serious: Yes (Hospitalization)
  Sender: FDA-Public Use
  Company Number: FR-SA-2015SA017395

PATIENT
  Age: 78 Year
  Sex: Female

DRUGS (13)
  1. CORDARONE [Suspect]
     Active Substance: AMIODARONE HYDROCHLORIDE
     Indication: TACHYCARDIA
     Dosage: FREQ: 5 DAYS A WEEK
     Route: 048
     Dates: start: 20140605
  2. PARIET [Concomitant]
     Active Substance: RABEPRAZOLE SODIUM
     Dosage: STRENGTH: 20MG
     Route: 048
  3. PREVISCAN [Concomitant]
     Active Substance: FLUINDIONE
     Dosage: 20 MG, SCORED TABLET
     Route: 048
     Dates: end: 20140727
  4. FUROSEMIDE. [Suspect]
     Active Substance: FUROSEMIDE
     Route: 048
     Dates: end: 20140723
  5. FUROSEMIDE. [Suspect]
     Active Substance: FUROSEMIDE
     Route: 048
     Dates: start: 20140725, end: 20140730
  6. FUROSEMIDE. [Suspect]
     Active Substance: FUROSEMIDE
     Route: 048
     Dates: start: 20140731
  7. CARDENSIEL [Suspect]
     Active Substance: BISOPROLOL FUMARATE
     Indication: TACHYCARDIA
     Dosage: STRENGTH: 5MG SCORED AILM-COATED TABLET
     Route: 048
     Dates: start: 20140605
  8. PERINDOPRIL [Concomitant]
     Active Substance: PERINDOPRIL
     Route: 048
  9. PRAVASTATIN SODIUM. [Concomitant]
     Active Substance: PRAVASTATIN SODIUM
     Route: 048
  10. PREVISCAN [Concomitant]
     Active Substance: FLUINDIONE
     Dosage: 20 MG, SCORED TABLET
     Route: 048
     Dates: start: 20140728
  11. SERESTA [Concomitant]
     Active Substance: OXAZEPAM
     Dosage: STRENGTH: 10 MG
     Route: 048
  12. LEVEMIR [Concomitant]
     Active Substance: INSULIN DETEMIR
     Dosage: STRENGTH: 100 U/ML
  13. FLEXPEN [Concomitant]
     Active Substance: UNSPECIFIED INGREDIENT

REACTIONS (3)
  - Malaise [Recovered/Resolved]
  - Hypotension [Recovered/Resolved]
  - Dehydration [Recovered/Resolved]

NARRATIVE: CASE EVENT DATE: 20140723
